FAERS Safety Report 18489176 (Version 1)
Quarter: 2020Q4

REPORT INFORMATION
  Report Type: Spontaneous
  Country: FR (occurrence: FR)
  Receive Date: 20201111
  Receipt Date: 20201111
  Transmission Date: 20210114
  Serious: Yes (Hospitalization)
  Sender: FDA-Public Use
  Company Number: FR-ROCHE-2708399

PATIENT
  Age: 40 Year
  Sex: Male
  Weight: 65 kg

DRUGS (5)
  1. HALDOL [Suspect]
     Active Substance: HALOPERIDOL
     Indication: INTENTIONAL OVERDOSE
     Route: 048
     Dates: start: 20200927, end: 20200927
  2. ALIMEMAZINE [Suspect]
     Active Substance: TRIMEPRAZINE
     Indication: INTENTIONAL OVERDOSE
     Route: 048
     Dates: start: 20200927, end: 20200927
  3. VALIUM [Suspect]
     Active Substance: DIAZEPAM
     Indication: INTENTIONAL OVERDOSE
     Route: 048
     Dates: start: 20200927, end: 20200927
  4. CANNABIS [Suspect]
     Active Substance: CANNABIS SATIVA SUBSP. INDICA TOP
     Indication: SUBSTANCE DEPENDENCE
     Route: 055
     Dates: start: 20200927, end: 20200927
  5. TROPATEPINE [Suspect]
     Active Substance: TROPATEPINE
     Indication: INTENTIONAL OVERDOSE
     Route: 048
     Dates: start: 20200927, end: 20200927

REACTIONS (6)
  - Generalised tonic-clonic seizure [Recovered/Resolved]
  - Rhabdomyolysis [Recovering/Resolving]
  - Urinary retention [Recovering/Resolving]
  - Poisoning deliberate [Recovered/Resolved]
  - Coma [Recovered/Resolved]
  - Acute kidney injury [Recovering/Resolving]

NARRATIVE: CASE EVENT DATE: 20200927
